FAERS Safety Report 9772509 (Version 1)
Quarter: 2013Q4

REPORT INFORMATION
  Report Type: Spontaneous
  Country: US (occurrence: US)
  Receive Date: 20131219
  Receipt Date: 20131219
  Transmission Date: 20140711
  Serious: Yes (Other)
  Sender: FDA-Public Use
  Company Number: CHPA2013US018492

PATIENT
  Age: 75 Year
  Sex: Female

DRUGS (2)
  1. EXCEDRIN EXTRA STRENGTH [Suspect]
     Indication: HEADACHE
     Dosage: 2 UNK, UNK
     Route: 048
  2. EXCEDRIN TENSION HEADACHE [Suspect]
     Indication: TENSION HEADACHE
     Dosage: 2 UNK, UNK

REACTIONS (3)
  - Fibromyalgia [Not Recovered/Not Resolved]
  - Abdominal discomfort [Recovered/Resolved]
  - Headache [Unknown]
